FAERS Safety Report 25926434 (Version 2)
Quarter: 2025Q4

REPORT INFORMATION
  Report Type: Spontaneous
  Country: AE (occurrence: AE)
  Receive Date: 20251015
  Receipt Date: 20251017
  Transmission Date: 20260117
  Serious: Yes (Other)
  Sender: PFIZER
  Company Number: AE-PFIZER INC-202500202051

PATIENT
  Age: 16 Year
  Sex: Male

DRUGS (3)
  1. HYMPAVZI [Suspect]
     Active Substance: MARSTACIMAB-HNCQ
     Dosage: LOADING DOSE (FIRST MONTH)
  2. HYMPAVZI [Suspect]
     Active Substance: MARSTACIMAB-HNCQ
     Dosage: 150 MG, WEEKLY (FIRST MONTH)
  3. HYMPAVZI [Suspect]
     Active Substance: MARSTACIMAB-HNCQ
     Dosage: SUBTHERAPEUTIC DOSE(2ND MONTH), ONCE EVERY TWO WEEKS

REACTIONS (3)
  - Haemarthrosis [Unknown]
  - Contusion [Unknown]
  - Underdose [Unknown]
